FAERS Safety Report 5859185-2 (Version None)
Quarter: 2008Q3

REPORT INFORMATION
  Report Type: 
  Country: None (occurrence: None)
  Receive Date: 20080825
  Receipt Date: 20080818
  Transmission Date: 20090109
  Serious: Yes (Death)
  Sender: FDA-Public Use
  Company Number: 2008SP016469

PATIENT
  Age: 47 Year
  Sex: Female
  Weight: 59.8 kg

DRUGS (2)
  1. PEGINTRON (PEGINTERFERON ALFA-1B) (PEGINTERFERON ALFA-2B) [Suspect]
     Indication: MALIGNANT MELANOMA
     Dosage: 180 MCG SC
     Route: 058
     Dates: start: 20080416, end: 20080618
  2. SORAFENIB (SORAFENIB) [Suspect]
     Indication: MALIGNANT MELANOMA
     Dosage: 400 MG PO
     Route: 048
     Dates: start: 20080416, end: 20080618

REACTIONS (1)
  - DEATH [None]
